FAERS Safety Report 13557624 (Version 22)
Quarter: 2023Q1

REPORT INFORMATION
  Report Type: Spontaneous
  Country: JP (occurrence: JP)
  Receive Date: 20170518
  Receipt Date: 20230210
  Transmission Date: 20230417
  Serious: Yes (Death, Life-Threatening, Hospitalization, Other)
  Sender: FDA-Public Use
  Company Number: JP-MSD-M2017-08971

PATIENT
  Age: 73 Year
  Sex: Male
  Weight: 60 kg

DRUGS (14)
  1. KEYTRUDA [Suspect]
     Active Substance: PEMBROLIZUMAB
     Indication: Lung adenocarcinoma stage IV
     Dosage: 200 MG, Q3W
     Route: 041
     Dates: start: 20170424, end: 20171025
  2. BICALUTAMIDE [Concomitant]
     Active Substance: BICALUTAMIDE
     Indication: Prostate cancer
     Dosage: 80 MILLIGRAM, QD
     Route: 048
  3. NESINA [Concomitant]
     Active Substance: ALOGLIPTIN BENZOATE
     Dosage: 25 MG, QD
     Route: 048
  4. NATEGLINIDE [Concomitant]
     Active Substance: NATEGLINIDE
     Dosage: 30 MG, TID
     Route: 048
  5. PREDONINE [Concomitant]
     Active Substance: PREDNISOLONE
     Dosage: 10 MG, QD
     Route: 048
     Dates: start: 20170317, end: 20170511
  6. ISCOTIN [Concomitant]
     Active Substance: ISONIAZID
     Indication: Prophylaxis
     Dosage: 300 MG, QD
     Route: 048
  7. SULFAMETHOXAZOLE\TRIMETHOPRIM [Concomitant]
     Active Substance: SULFAMETHOXAZOLE\TRIMETHOPRIM
     Indication: Prophylaxis
     Dosage: 1 DF, QD
     Route: 048
  8. RISEDRONATE SODIUM [Concomitant]
     Active Substance: RISEDRONATE SODIUM
     Indication: Prophylaxis
     Dosage: 17.5 MG, QD
     Route: 048
  9. LANSOPRAZOLE [Concomitant]
     Active Substance: LANSOPRAZOLE
     Indication: Prophylaxis
     Dosage: 15 MG, QD
     Route: 048
  10. CALCIUM ASPARTATE [Concomitant]
     Active Substance: CALCIUM ASPARTATE
     Indication: Lung adenocarcinoma
     Dosage: 200 MG, TID
     Route: 048
  11. ALFACALCIDOL [Concomitant]
     Active Substance: ALFACALCIDOL
     Indication: Lung adenocarcinoma
     Dosage: 1 MICROGRAM, QD
     Route: 048
  12. DEXTROMETHORPHAN HYDROBROMIDE [Concomitant]
     Active Substance: DEXTROMETHORPHAN HYDROBROMIDE
     Indication: Lung adenocarcinoma
     Dosage: 30 MG, TID
     Route: 048
     Dates: end: 20170622
  13. CODEINE PHOSPHATE [Concomitant]
     Active Substance: CODEINE PHOSPHATE
     Indication: Lung adenocarcinoma
     Dosage: 1 PERCENT, PRN(WHEN COUGHING)
     Route: 048
     Dates: end: 20170622
  14. DENOSUMAB [Concomitant]
     Active Substance: DENOSUMAB
     Indication: Lung adenocarcinoma
     Dosage: 120 MG, QD
     Route: 058

REACTIONS (8)
  - Malignant neoplasm progression [Fatal]
  - Atrioventricular block complete [Recovered/Resolved]
  - White blood cell count decreased [Recovered/Resolved]
  - Drug-induced liver injury [Recovering/Resolving]
  - Myocarditis [Recovering/Resolving]
  - Immune-mediated dermatitis [Recovered/Resolved]
  - Hyperglycaemia [Unknown]
  - Constipation [Not Recovered/Not Resolved]

NARRATIVE: CASE EVENT DATE: 20170503
